FAERS Safety Report 7808775-6 (Version None)
Quarter: 2011Q4

REPORT INFORMATION
  Report Type: 
  Country: None (occurrence: None)
  Receive Date: 20111012
  Receipt Date: 20110927
  Transmission Date: 20120403
  Serious: Yes (Hospitalization, Other)
  Sender: FDA-Public Use
  Company Number: PHEH2011US05509

PATIENT
  Age: 47 Year
  Sex: Male
  Weight: 74 kg

DRUGS (16)
  1. WELLBUTRIN XL [Concomitant]
     Dosage: 300 MG, DAILY
     Dates: start: 20110615
  2. SORIATANE [Concomitant]
     Indication: SKIN CANCER
     Dosage: 10 MG, DAILY
     Dates: start: 20080926
  3. ZOFRAN [Concomitant]
     Indication: VOMITING
  4. CYMBALTA [Concomitant]
     Indication: DEPRESSION
  5. MYFORTIC [Suspect]
     Indication: PROPHYLAXIS AGAINST TRANSPLANT REJECTION
     Dosage: 1080 MG, DAILY
     Route: 048
     Dates: start: 20080712
  6. PREDNISONE [Concomitant]
     Indication: PROPHYLAXIS AGAINST TRANSPLANT REJECTION
     Dosage: 5 MG/ 5 ML DAILY
     Route: 048
     Dates: start: 19910517
  7. ABILIFY [Concomitant]
     Indication: DEPRESSION
     Dosage: 4 MG,DAILY
     Dates: start: 20090605
  8. LAMICTAL [Concomitant]
     Indication: BIPOLAR DISORDER
     Dosage: 300 MG, UNK
     Dates: start: 20030304
  9. PROTONIX [Concomitant]
     Dosage: 80 MG, DAILY
     Route: 048
     Dates: start: 20101108
  10. NORVASC [Concomitant]
     Indication: HYPERTENSION
     Dosage: 5 MG,DAILY
     Dates: start: 20110512
  11. ADDERALL XR 10 [Concomitant]
     Indication: DISTURBANCE IN ATTENTION
     Dosage: 20 MG, UNK
     Dates: start: 20090825
  12. ADDERALL 5 [Concomitant]
     Indication: FATIGUE
     Dosage: UNK
     Dates: start: 20110106
  13. DIAZEPAM [Concomitant]
     Indication: ANXIETY
     Dosage: 5 MG, UNK
     Dates: start: 20110113
  14. ATENOLOL [Concomitant]
     Indication: HYPERTENSION
     Dosage: 25 MG, UNK
     Route: 048
     Dates: start: 19911130
  15. TEMAZEPAM [Concomitant]
     Indication: INSOMNIA
     Dosage: 30 MG, NEEDED
     Dates: start: 20030303
  16. PROGRAF [Concomitant]
     Indication: PROPHYLAXIS AGAINST TRANSPLANT REJECTION
     Dosage: 2 MG, DAILY
     Dates: start: 20110105

REACTIONS (6)
  - VOMITING [None]
  - BLOOD CREATINE PHOSPHOKINASE INCREASED [None]
  - NAUSEA [None]
  - GASTRIC ULCER [None]
  - PANCREATITIS [None]
  - KIDNEY TRANSPLANT REJECTION [None]
